FAERS Safety Report 5811729-2 (Version None)
Quarter: 2008Q3

REPORT INFORMATION
  Report Type: 
  Country: None (occurrence: None)
  Receive Date: 20080716
  Receipt Date: 20080708
  Transmission Date: 20090109
  Serious: Yes (Life-Threatening, Hospitalization, Other)
  Sender: FDA-Public Use
  Company Number: B0523414A

PATIENT
  Age: 40 Year
  Sex: Male
  Weight: 68 kg

DRUGS (3)
  1. AUGMENTIN '125' [Suspect]
     Indication: BRONCHITIS
     Dosage: 500MG TWICE PER DAY
     Route: 048
     Dates: start: 20080527, end: 20080527
  2. TAHOR [Concomitant]
     Dosage: 10MG PER DAY
     Route: 048
     Dates: start: 20050101
  3. LEXOMIL [Concomitant]
     Indication: DRUG USE FOR UNKNOWN INDICATION
     Route: 065

REACTIONS (13)
  - ANAPHYLACTIC SHOCK [None]
  - BRONCHOSPASM [None]
  - CARDIAC ARREST [None]
  - CARDIO-RESPIRATORY ARREST [None]
  - COMA [None]
  - DIZZINESS [None]
  - ERYTHEMA [None]
  - EYE DISORDER [None]
  - FALL [None]
  - HYPOTENSION [None]
  - OEDEMA [None]
  - SYNCOPE [None]
  - URTICARIA [None]
